FAERS Safety Report 11885252 (Version 1)
Quarter: 2016Q1

REPORT INFORMATION
  Report Type: Report from Study
  Country: US (occurrence: US)
  Receive Date: 20160104
  Receipt Date: 20160104
  Transmission Date: 20160526
  Serious: Yes (Other)
  Sender: FDA-Public Use
  Company Number: US-BAYER-2015-401824

PATIENT
  Age: 65 Year
  Sex: Female

DRUGS (3)
  1. NEXAVAR [Suspect]
     Active Substance: SORAFENIB
     Indication: HEPATOCELLULAR CARCINOMA
     Dosage: 400 MG, QD (TAKE WITHOUT FOOD)
     Route: 048
     Dates: start: 201509
  2. NEXAVAR [Suspect]
     Active Substance: SORAFENIB
     Indication: HEPATOCELLULAR CARCINOMA
     Dosage: 400 MG, BID (TAKE WITHOUT FOOD 1 HOUR BEFORE OR 2 HOURS AFTER EATING)
     Route: 048
  3. NEXAVAR [Suspect]
     Active Substance: SORAFENIB
     Indication: HEPATOCELLULAR CARCINOMA
     Dosage: UNK
     Route: 048
     Dates: start: 20151001

REACTIONS (10)
  - Dyspnoea [None]
  - Dizziness [None]
  - Pain of skin [Not Recovered/Not Resolved]
  - Pruritus [Not Recovered/Not Resolved]
  - Heart rate irregular [None]
  - Stress [None]
  - Headache [None]
  - Unevaluable event [None]
  - Rash papular [None]
  - Fatigue [None]

NARRATIVE: CASE EVENT DATE: 20151019
